FAERS Safety Report 5628085-5 (Version None)
Quarter: 2008Q1

REPORT INFORMATION
  Report Type: 
  Country: None (occurrence: None)
  Receive Date: 20080215
  Receipt Date: 20080201
  Transmission Date: 20080703
  Serious: Yes (Other)
  Sender: FDA-Public Use
  Company Number: IT-GENENTECH-255783

PATIENT
  Sex: Female

DRUGS (2)
  1. AVASTIN [Suspect]
     Indication: BREAST CANCER METASTATIC
     Route: 042
  2. PACLITAXEL [Suspect]
     Indication: BREAST CANCER METASTATIC

REACTIONS (3)
  - ASCITES [None]
  - HEPATIC CIRRHOSIS [None]
  - PORTAL HYPERTENSION [None]
